FAERS Safety Report 8969580 (Version 1)
Quarter: 2012Q4

REPORT INFORMATION
  Report Type: 
  Country: US (occurrence: US)
  Receive Date: 20121218
  Receipt Date: 20121218
  Transmission Date: 20130627
  Serious: No
  Sender: FDA-Public Use
  Company Number: US-BRISTOL-MYERS SQUIBB COMPANY-16606642

PATIENT
  Age: 28 Year
  Sex: Female
  Weight: 48 kg

DRUGS (1)
  1. ABILIFY TABS 10 MG [Suspect]
     Indication: PSYCHOTIC DISORDER
     Dates: start: 201205, end: 201205

REACTIONS (2)
  - Tardive dyskinesia [Not Recovered/Not Resolved]
  - Restlessness [Unknown]
